FAERS Safety Report 23161861 (Version 2)
Quarter: 2024Q3

REPORT INFORMATION
  Report Type: Report from Study
  Country: AU (occurrence: AU)
  Receive Date: 20231108
  Receipt Date: 20240710
  Transmission Date: 20241016
  Serious: No
  Sender: SANOFI AVENTIS
  Company Number: AU-SA-SAC20230515000410

PATIENT
  Age: 52 Year
  Sex: Male

DRUGS (2)
  1. ALEMTUZUMAB [Suspect]
     Active Substance: ALEMTUZUMAB
     Indication: Relapsing multiple sclerosis
     Dosage: 12 MG, QD
     Route: 041
     Dates: start: 20150629, end: 20150703
  2. ALEMTUZUMAB [Suspect]
     Active Substance: ALEMTUZUMAB
     Dosage: 12 MG, QD
     Route: 041
     Dates: start: 20160629, end: 20160701

REACTIONS (3)
  - Idiopathic angioedema [Recovered/Resolved]
  - Urticaria [Recovered/Resolved]
  - COVID-19 [Recovered/Resolved]

NARRATIVE: CASE EVENT DATE: 20230505
